FAERS Safety Report 10286624 (Version 1)
Quarter: 2014Q3

REPORT INFORMATION
  Report Type: Spontaneous
  Country: JP (occurrence: JP)
  Receive Date: 20140709
  Receipt Date: 20140709
  Transmission Date: 20150326
  Serious: Yes (Death)
  Sender: FDA-Public Use
  Company Number: PHHY2010JP095504

PATIENT

DRUGS (3)
  1. TEGAFUR [Concomitant]
     Active Substance: TEGAFUR
  2. URACIL [Concomitant]
     Active Substance: URACIL
  3. SANDOSTATIN LAR DEPOT [Suspect]
     Active Substance: OCTREOTIDE ACETATE
     Indication: GASTRINOMA

REACTIONS (1)
  - Death [Fatal]
